FAERS Safety Report 12724428 (Version 1)
Quarter: 2016Q3

REPORT INFORMATION
  Report Type: Spontaneous
  Country: US (occurrence: US)
  Receive Date: 20160908
  Receipt Date: 20160908
  Transmission Date: 20161109
  Serious: No
  Sender: FDA-Public Use
  Company Number: US-FERRINGPH-2016FE00928

PATIENT
  Age: 65 Year
  Sex: Female
  Weight: 86.17 kg

DRUGS (13)
  1. PREPOPIK [Suspect]
     Active Substance: ANHYDROUS CITRIC ACID\MAGNESIUM OXIDE\SODIUM PICOSULFATE
     Indication: BOWEL PREPARATION
     Dosage: 2 SACHETS
     Route: 048
     Dates: start: 20160218, end: 20160218
  2. LOSARTAN. [Concomitant]
     Active Substance: LOSARTAN
  3. GLIMEPIRIDE. [Concomitant]
     Active Substance: GLIMEPIRIDE
  4. BENADRYL [Concomitant]
     Active Substance: DIPHENHYDRAMINE HYDROCHLORIDE
  5. METOPROLOL. [Concomitant]
     Active Substance: METOPROLOL
  6. ALDACTONE [Concomitant]
     Active Substance: SPIRONOLACTONE
  7. METFORMIN [Concomitant]
     Active Substance: METFORMIN HYDROCHLORIDE
  8. EFFEXOR [Concomitant]
     Active Substance: VENLAFAXINE HYDROCHLORIDE
  9. LASIX [Concomitant]
     Active Substance: FUROSEMIDE
  10. GABAPENTIN. [Concomitant]
     Active Substance: GABAPENTIN
  11. ATORVASTATIN [Concomitant]
     Active Substance: ATORVASTATIN
  12. METHOCARBAMOL. [Concomitant]
     Active Substance: METHOCARBAMOL
  13. ZANTAC [Concomitant]
     Active Substance: RANITIDINE HYDROCHLORIDE

REACTIONS (1)
  - Drug ineffective [Unknown]

NARRATIVE: CASE EVENT DATE: 20160219
